FAERS Safety Report 21440071 (Version 1)
Quarter: 2022Q4

REPORT INFORMATION
  Report Type: Spontaneous
  Country: US (occurrence: None)
  Receive Date: 20221009
  Receipt Date: 20221009
  Transmission Date: 20230112
  Serious: Yes (Hospitalization, Other)
  Sender: FDA-Public Use
  Company Number: None

PATIENT
  Age: 32 Year
  Sex: Female
  Weight: 49.5 kg

DRUGS (2)
  1. LEVOFLOXACIN [Suspect]
     Active Substance: LEVOFLOXACIN
     Indication: Post procedural infection
     Dosage: OTHER QUANTITY : 1 TABLET(S);?FREQUENCY : DAILY;?
     Route: 048
     Dates: start: 20220915, end: 20220922
  2. ADDERALL [Concomitant]
     Active Substance: AMPHETAMINE ASPARTATE\AMPHETAMINE SULFATE\DEXTROAMPHETAMINE SACCHARATE\DEXTROAMPHETAMINE SULFATE

REACTIONS (16)
  - Hypoaesthesia [None]
  - Vision blurred [None]
  - Tremor [None]
  - Loss of consciousness [None]
  - Dysarthria [None]
  - Heart rate increased [None]
  - Headache [None]
  - Anxiety [None]
  - Tendon pain [None]
  - Arthralgia [None]
  - Muscular weakness [None]
  - Suicidal ideation [None]
  - Depression [None]
  - Nightmare [None]
  - Insomnia [None]
  - Neuropathy peripheral [None]

NARRATIVE: CASE EVENT DATE: 20220915
